FAERS Safety Report 8206281-0 (Version None)
Quarter: 2012Q1

REPORT INFORMATION
  Report Type: 
  Country: None (occurrence: None)
  Receive Date: 20120313
  Receipt Date: 20120302
  Transmission Date: 20120608
  Serious: Yes (Hospitalization, Other)
  Sender: FDA-Public Use
  Company Number: PHHY2012DE018876

PATIENT
  Sex: Female
  Weight: 84 kg

DRUGS (6)
  1. METOPROLOL SUCCINATE [Suspect]
     Indication: HYPERTENSION
     Dosage: 95 MG, PER DAY
     Route: 048
     Dates: start: 20100614
  2. ASPIRIN [Suspect]
     Dosage: 100 MG, PER DAY
     Route: 048
     Dates: start: 20100614
  3. RASILEZ HCT [Suspect]
     Indication: HYPERTENSION
     Dosage: 1 DF, PER DAY
     Route: 048
     Dates: start: 20110315, end: 20110401
  4. SIMVASTATIN [Suspect]
     Indication: HYPERLIPIDAEMIA
     Dosage: 50 MG, PER DAY
     Route: 048
     Dates: start: 20100614
  5. RAMIPRIL+HYDROCHLOROTHIAZIDE [Suspect]
     Indication: HYPERTENSION
     Dosage: 1 DF, PER DAY
     Route: 048
     Dates: start: 20110401
  6. LEVOTHYROXINE SODIUM [Suspect]
     Indication: HYPOTHYROIDISM
     Dosage: 75 UG, PER DAY
     Route: 048
     Dates: start: 20100614

REACTIONS (2)
  - MYOCARDIAL INFARCTION [None]
  - PARKINSON'S DISEASE [None]
